FAERS Safety Report 6445699-3 (Version None)
Quarter: 2009Q4

REPORT INFORMATION
  Report Type: 
  Country: None (occurrence: None)
  Receive Date: 20091118
  Receipt Date: 20091118
  Transmission Date: 20100525
  Serious: Yes (Hospitalization)
  Sender: FDA-Public Use
  Company Number: None

PATIENT
  Age: 54 Year
  Sex: Male
  Weight: 60.91 kg

DRUGS (2)
  1. CETUXIMAB [Suspect]
     Indication: OROPHARYNGEAL CANCER STAGE UNSPECIFIED
     Dosage: 250 MG/M2, WEEKLY, IV
     Route: 042
     Dates: start: 20091009, end: 20091111
  2. CISPLATIN [Suspect]
     Indication: OROPHARYNGEAL CANCER STAGE UNSPECIFIED
     Dosage: 30 MG/M2, WEEKLY, IV
     Route: 042
     Dates: start: 20091009, end: 20091111

REACTIONS (4)
  - ASTHENIA [None]
  - DIZZINESS POSTURAL [None]
  - GAIT DISTURBANCE [None]
  - PAIN [None]
